FAERS Safety Report 8002920-8 (Version None)
Quarter: 2011Q4

REPORT INFORMATION
  Report Type: 
  Country: None (occurrence: None)
  Receive Date: 20111222
  Receipt Date: 20110324
  Transmission Date: 20120403
  Serious: No
  Sender: FDA-Public Use
  Company Number: US-GLAXOSMITHKLINE-A0919844A

PATIENT
  Age: 62 Year
  Sex: Male

DRUGS (9)
  1. FLOMAX [Concomitant]
  2. BACLOFEN [Concomitant]
  3. GABAPENTIN [Concomitant]
  4. AVODART [Suspect]
     Indication: PROSTATOMEGALY
     Dosage: .5MG PER DAY
     Route: 048
     Dates: start: 20100601
  5. CARBIDOPA + LEVODOPA [Concomitant]
     Indication: PARKINSONISM
  6. FLOMAX [Suspect]
     Dosage: .4MG PER DAY
     Dates: start: 20100601
  7. MIRAPEX [Concomitant]
  8. METFORMIN HCL [Concomitant]
  9. CAPTOPRIL [Concomitant]

REACTIONS (1)
  - DRUG INEFFECTIVE [None]
